FAERS Safety Report 4979620-1 (Version None)
Quarter: 2006Q2

REPORT INFORMATION
  Report Type: 
  Country: None (occurrence: None)
  Receive Date: 20060418
  Receipt Date: 20060406
  Transmission Date: 20061013
  Serious: Yes (Hospitalization)
  Sender: FDA-Public Use
  Company Number: AU-2005-015483

PATIENT
  Age: 33 Year
  Sex: Female

DRUGS (9)
  1. LEUKINE [Suspect]
     Indication: CROHN'S DISEASE
     Dosage: 6 UG/KG, 1X/DAY, SUBCUTANEOUS
     Route: 058
     Dates: start: 20050628, end: 20050802
  2. NORDETTE-21 [Suspect]
     Indication: ORAL CONTRACEPTION
     Dosage: ORAL
     Route: 048
     Dates: start: 19950101, end: 20050801
  3. SEREPAX (OXAZEPAM) [Concomitant]
  4. TRAMADOL HCL [Concomitant]
  5. PANADEINE (CODEINE PHOSPHATE) [Concomitant]
  6. VITAMIN B-12 [Concomitant]
  7. PEDNISOLONE [Concomitant]
  8. AZATHIOPRINE [Concomitant]
  9. NORDETTE-21 [Concomitant]

REACTIONS (14)
  - ARTERY DISSECTION [None]
  - CAROTID ARTERY DISSECTION [None]
  - CAROTID ARTERY STENOSIS [None]
  - CEREBRAL ARTERY EMBOLISM [None]
  - CEREBRAL ARTERY OCCLUSION [None]
  - CEREBRAL ARTERY STENOSIS [None]
  - CEREBRAL INFARCTION [None]
  - DEMYELINATION [None]
  - DYSPHAGIA [None]
  - ENCEPHALOMALACIA [None]
  - GLIOSIS [None]
  - HAEMATOCRIT DECREASED [None]
  - ISCHAEMIC STROKE [None]
  - TRANSIENT ISCHAEMIC ATTACK [None]
